FAERS Safety Report 11115756 (Version 1)
Quarter: 2015Q2

REPORT INFORMATION
  Report Type: Report from Study
  Country: NL (occurrence: NL)
  Receive Date: 20150515
  Receipt Date: 20150515
  Transmission Date: 20150821
  Serious: Yes (Death)
  Sender: FDA-Public Use
  Company Number: NL-AMGEN-NLDSL2015046048

PATIENT
  Age: 72 Year
  Sex: Male

DRUGS (8)
  1. LACTULOSESTROOP [Concomitant]
     Dosage: 670 MG/ML, UNK
  2. XGEVA [Suspect]
     Active Substance: DENOSUMAB
     Indication: PRODUCT USED FOR UNKNOWN INDICATION
     Dosage: 120 MG, Q4WK
     Route: 058
     Dates: start: 20150202, end: 20150424
  3. DEXAMETHASON                       /00016001/ [Concomitant]
     Active Substance: DEXAMETHASONE
     Dosage: 0.5 MG, UNK
  4. INSTILLAGEL [Concomitant]
     Active Substance: CHLORHEXIDINE GLUCONATE\LIDOCAINE HYDROCHLORIDE
     Dosage: 6 ML, UNK
  5. CLEMASTINE [Concomitant]
     Active Substance: CLEMASTINE
     Dosage: 1 MG, UNK
  6. PANTOPRAZOLE SODIUM. [Concomitant]
     Active Substance: PANTOPRAZOLE SODIUM
     Dosage: 20 MG, UNK
  7. OXYCODON [Concomitant]
     Active Substance: OXYCODONE
     Dosage: UNK
  8. GOSERELINE [Concomitant]
     Active Substance: GOSERELIN
     Dosage: 10.8 MG, UNK

REACTIONS (1)
  - Death [Fatal]

NARRATIVE: CASE EVENT DATE: 20150501
